FAERS Safety Report 6714275-7 (Version None)
Quarter: 2010Q2

REPORT INFORMATION
  Report Type: 
  Country: None (occurrence: None)
  Receive Date: 20100506
  Receipt Date: 20091118
  Transmission Date: 20101027
  Serious: No
  Sender: FDA-Public Use
  Company Number: US-BAUSCH-2009BL006111

PATIENT
  Age: 67 Year
  Sex: Female

DRUGS (2)
  1. LOTEMAX [Suspect]
     Indication: EYE PRURITUS
     Route: 047
     Dates: start: 20091001, end: 20091031
  2. LOTEMAX [Suspect]
     Indication: EYE SWELLING
     Route: 047
     Dates: start: 20091001, end: 20091031

REACTIONS (1)
  - OROPHARYNGEAL PAIN [None]
